FAERS Safety Report 7814509-1 (Version None)
Quarter: 2011Q4

REPORT INFORMATION
  Report Type: 
  Country: None (occurrence: None)
  Receive Date: 20111014
  Receipt Date: 20111014
  Transmission Date: 20120403
  Serious: Yes (Hospitalization)
  Sender: FDA-Public Use
  Company Number: PHHO2009US10239

PATIENT
  Sex: Female
  Weight: 114 kg

DRUGS (2)
  1. NUVARING [Suspect]
     Indication: CONTRACEPTION
  2. GILENYA [Suspect]
     Indication: MULTIPLE SCLEROSIS
     Dosage: 0.5 MG, UNK
     Route: 048
     Dates: start: 20071106

REACTIONS (2)
  - DYSPNOEA [None]
  - PULMONARY EMBOLISM [None]
